FAERS Safety Report 15882737 (Version 1)
Quarter: 2019Q1

REPORT INFORMATION
  Report Type: Spontaneous
  Country: FR (occurrence: FR)
  Receive Date: 20190129
  Receipt Date: 20190129
  Transmission Date: 20190417
  Serious: Yes (Hospitalization)
  Sender: FDA-Public Use
  Company Number: FR-TEVA-2019-FR-1003929

PATIENT
  Age: 22 Year
  Sex: Female
  Weight: 83 kg

DRUGS (8)
  1. PARACETAMOL [Suspect]
     Active Substance: ACETAMINOPHEN
     Indication: TOXICITY TO VARIOUS AGENTS
     Route: 048
     Dates: start: 20180716, end: 20180716
  2. PREDNISONE. [Suspect]
     Active Substance: PREDNISONE
     Indication: TOXICITY TO VARIOUS AGENTS
     Route: 048
     Dates: start: 20180716, end: 20180716
  3. LARGACTIL [Concomitant]
     Active Substance: CHLORPROMAZINE
  4. IBUPROFEN. [Suspect]
     Active Substance: IBUPROFEN
     Indication: TOXICITY TO VARIOUS AGENTS
     Route: 048
     Dates: start: 20180716, end: 20180716
  5. IMOVANE [Concomitant]
     Active Substance: ZOPICLONE
  6. LYSANXIA [Concomitant]
     Active Substance: PRAZEPAM
  7. XEROQUEL [Concomitant]
     Active Substance: QUETIAPINE FUMARATE
  8. SPIFEN 400 MG, COMPRIM? PELLICUL? [Suspect]
     Active Substance: IBUPROFEN
     Indication: TOXICITY TO VARIOUS AGENTS
     Route: 048
     Dates: start: 20180716, end: 20180716

REACTIONS (2)
  - Abdominal pain [Recovered/Resolved]
  - Toxicity to various agents [Recovered/Resolved]

NARRATIVE: CASE EVENT DATE: 20180716
